FAERS Safety Report 20233930 (Version 1)
Quarter: 2021Q4

REPORT INFORMATION
  Report Type: Spontaneous
  Country: US (occurrence: US)
  Receive Date: 20211227
  Receipt Date: 20211227
  Transmission Date: 20220303
  Serious: No
  Sender: FDA-Public Use
  Company Number: US-PFIZER INC-2021494200

PATIENT
  Sex: Female

DRUGS (5)
  1. ZOLOFT [Suspect]
     Active Substance: SERTRALINE HYDROCHLORIDE
     Indication: Antidepressant therapy
     Dosage: UNK (VERY LOW DOSE)
  2. FIRDAPSE [Suspect]
     Active Substance: AMIFAMPRIDINE PHOSPHATE
     Dosage: UNK
  3. CLOMIPRAMINE [Suspect]
     Active Substance: CLOMIPRAMINE
     Indication: Antidepressant therapy
     Dosage: UNK (VERY LOW DOSE)
  4. LATUDA [Suspect]
     Active Substance: LURASIDONE HYDROCHLORIDE
     Indication: Antidepressant therapy
     Dosage: UNK (VERY LOW DOSE)
  5. KLONOPIN [Suspect]
     Active Substance: CLONAZEPAM
     Indication: Antidepressant therapy
     Dosage: UNK (VERY LOW DOSE)

REACTIONS (1)
  - Asthenia [Unknown]
